FAERS Safety Report 24026913 (Version 2)
Quarter: 2024Q3

REPORT INFORMATION
  Report Type: Report from Study
  Country: RS (occurrence: RS)
  Receive Date: 20240628
  Receipt Date: 20240710
  Transmission Date: 20241017
  Serious: No
  Sender: ROCHE
  Company Number: RS-ROCHE-3285010

PATIENT
  Age: 60 Year
  Sex: Male
  Weight: 64.0 kg

DRUGS (13)
  1. ALECTINIB [Suspect]
     Active Substance: ALECTINIB
     Indication: Non-small cell lung cancer metastatic
     Route: 048
     Dates: start: 20221128
  2. LISINOPRIL [Concomitant]
     Active Substance: LISINOPRIL
     Indication: Hypertension
     Route: 048
  3. BROMAZEPAM [Concomitant]
     Active Substance: BROMAZEPAM
     Indication: Hypertension
     Route: 048
  4. EUTHYROX [Concomitant]
     Active Substance: LEVOTHYROXINE SODIUM
     Indication: Hypothyroidism
     Route: 048
  5. DIETARY SUPPLEMENT\HERBALS\MILK THISTLE [Concomitant]
     Active Substance: MILK THISTLE
     Indication: Hypothyroidism
     Route: 048
     Dates: start: 20221128
  6. NADROPARIN CALCIUM [Concomitant]
     Active Substance: NADROPARIN CALCIUM
     Indication: Venous thrombosis limb
     Route: 058
     Dates: start: 20221214, end: 20230201
  7. NADROPARIN CALCIUM [Concomitant]
     Active Substance: NADROPARIN CALCIUM
     Indication: Thrombosis prophylaxis
     Route: 058
     Dates: start: 20230202
  8. DIOSMINEX [Concomitant]
     Indication: Venous thrombosis limb
     Route: 048
     Dates: start: 20221214, end: 20230201
  9. DIOSMINEX [Concomitant]
     Indication: Thrombosis prophylaxis
     Route: 048
     Dates: start: 20230202
  10. LEVOFLOXACIN [Concomitant]
     Active Substance: LEVOFLOXACIN
     Indication: Epididymitis
     Route: 048
     Dates: start: 20230131, end: 20230209
  11. CEFIXIME [Concomitant]
     Active Substance: CEFIXIME
     Indication: Epididymitis
     Route: 048
     Dates: start: 20230210, end: 20230219
  12. PROBIOTICS NOS [Concomitant]
     Active Substance: PROBIOTICS NOS
     Indication: Diarrhoea
     Route: 048
     Dates: start: 20230131, end: 20230219
  13. HEPARIN [Concomitant]
     Active Substance: HEPARIN SODIUM
     Indication: Venous thrombosis
     Route: 062
     Dates: start: 20221214

REACTIONS (1)
  - Constipation [Recovered/Resolved]

NARRATIVE: CASE EVENT DATE: 20230120
